FAERS Safety Report 5897507-7 (Version None)
Quarter: 2008Q3

REPORT INFORMATION
  Report Type: 
  Country: None (occurrence: None)
  Receive Date: 20080925
  Receipt Date: 20080919
  Transmission Date: 20090109
  Serious: Yes (Other)
  Sender: FDA-Public Use
  Company Number: US-ALLERGAN-0809878US

PATIENT
  Sex: Female
  Weight: 48.073 kg

DRUGS (3)
  1. RESTASIS [Suspect]
     Indication: ROSACEA
     Dosage: 1 GTT, BID
     Route: 047
     Dates: start: 20080601
  2. RESTASIS [Suspect]
     Dosage: 1 GTT, BID
     Route: 047
  3. XANAX [Concomitant]
     Indication: INSOMNIA
     Dosage: 0.25 MG, 1 - 2 X/DAILY, SEVERAL YEARS

REACTIONS (4)
  - CHEST DISCOMFORT [None]
  - COUGH [None]
  - DYSPNOEA [None]
  - TINNITUS [None]
